FAERS Safety Report 4446755-1 (Version None)
Quarter: 2004Q3

REPORT INFORMATION
  Report Type: 
  Country: None (occurrence: None)
  Receive Date: 20040910
  Receipt Date: 20040826
  Transmission Date: 20050211
  Serious: Yes (Hospitalization)
  Sender: FDA-Public Use
  Company Number: 2004060024

PATIENT
  Sex: Female
  Weight: 61.2356 kg

DRUGS (7)
  1. NEOSPORIN [Suspect]
     Indication: RASH
     Dosage: ENOUGH TO COVER RASH 1 OR 2 X A DAY, TOPICAL
     Route: 061
     Dates: start: 20040101
  2. HYDROXYZINE [Concomitant]
  3. DOXEPIN HCL [Concomitant]
  4. HYDROCODONE [Concomitant]
  5. DEXTROPROPOXYPHENE HYDROCHLORIDE [Concomitant]
  6. RISEDRONATE SODIUM [Concomitant]
  7. CARISOPRODOL [Concomitant]

REACTIONS (10)
  - ABASIA [None]
  - BLOOD POTASSIUM ABNORMAL [None]
  - BLOOD SODIUM ABNORMAL [None]
  - CONDITION AGGRAVATED [None]
  - GENERALISED ERYTHEMA [None]
  - INSOMNIA [None]
  - KIDNEY INFECTION [None]
  - PRURITUS [None]
  - RASH [None]
  - URINE SODIUM DECREASED [None]
